FAERS Safety Report 10294169 (Version 2)
Quarter: 2014Q3

REPORT INFORMATION
  Report Type: Spontaneous
  Country: ES (occurrence: ES)
  Receive Date: 20140710
  Receipt Date: 20140710
  Transmission Date: 20150326
  Serious: Yes (Hospitalization, Other)
  Sender: FDA-Public Use
  Company Number: ES-UCBSA-2014004370

PATIENT
  Age: 73 Year
  Sex: Female

DRUGS (8)
  1. LAMOTRIGINE. [Concomitant]
     Active Substance: LAMOTRIGINE
     Dosage: 150 MG, ONCE DAILY (QD)
  2. TORASEMIDE [Concomitant]
     Active Substance: TORSEMIDE
     Dosage: 5 MG, ONCE DAILY (QD)
  3. TARKA [Concomitant]
     Active Substance: TRANDOLAPRIL\VERAPAMIL HYDROCHLORIDE
     Indication: HYPERTENSION
     Dosage: 180 MG, 2X/DAY (BID)
     Route: 048
  4. ACETYLSALICYLIC ACID [Concomitant]
     Active Substance: ASPIRIN
     Dosage: 100 MG, ONCE DAILY (QD)
  5. ATORVASTATIN [Concomitant]
     Active Substance: ATORVASTATIN
     Dosage: 10 MG, ONCE DAILY (QD)
  6. LEVETIRACETAM. [Concomitant]
     Active Substance: LEVETIRACETAM
     Dosage: 500 MG, ONCE DAILY (QD)
  7. VIMPAT [Suspect]
     Active Substance: LACOSAMIDE
     Dosage: UNKNOWN DOSE
     Route: 042
     Dates: end: 20140603
  8. RANITIDINE [Concomitant]
     Active Substance: RANITIDINE\RANITIDINE HYDROCHLORIDE
     Dosage: 300 MG, ONCE DAILY (QD)

REACTIONS (3)
  - Blood pressure increased [Unknown]
  - Atrioventricular block complete [Unknown]
  - Epistaxis [Unknown]

NARRATIVE: CASE EVENT DATE: 20140603
